FAERS Safety Report 9468196 (Version 3)
Quarter: 2013Q4

REPORT INFORMATION
  Report Type: Spontaneous
  Country: US (occurrence: US)
  Receive Date: 20130821
  Receipt Date: 20131004
  Transmission Date: 20140711
  Serious: Yes (Hospitalization, Other)
  Sender: FDA-Public Use
  Company Number: US-GILEAD-2013-0081625

PATIENT
  Sex: Female

DRUGS (6)
  1. LETAIRIS [Suspect]
     Indication: PULMONARY HYPERTENSION
     Dosage: 5 MG, UNK
     Route: 048
     Dates: start: 20130308
  2. LETAIRIS [Suspect]
     Indication: CONNECTIVE TISSUE DISORDER
  3. VELETRI [Suspect]
  4. RITUXAN [Concomitant]
  5. SILDENAFIL [Concomitant]
  6. LASIX                              /00032601/ [Concomitant]

REACTIONS (3)
  - Scleroderma [Unknown]
  - Pain in extremity [Unknown]
  - Pain [Unknown]
